FAERS Safety Report 23863094 (Version 1)
Quarter: 2024Q2

REPORT INFORMATION
  Report Type: Spontaneous
  Country: US (occurrence: US)
  Receive Date: 20240516
  Receipt Date: 20240516
  Transmission Date: 20240716
  Serious: No
  Sender: FDA-Public Use
  Company Number: US-BAYER-2024A070012

PATIENT

DRUGS (2)
  1. ALKA-SELTZER PLUS MAXIMUM STRENGTH COUGH AND MUCUS DM [Suspect]
     Active Substance: DEXTROMETHORPHAN HYDROBROMIDE\GUAIFENESIN
     Indication: Hypersensitivity
     Dosage: UNKNOWN
     Route: 048
  2. ALKA-SELTZER PLUS MAXIMUM STRENGTH COUGH AND MUCUS DM [Suspect]
     Active Substance: DEXTROMETHORPHAN HYDROBROMIDE\GUAIFENESIN
     Indication: Nasopharyngitis

REACTIONS (5)
  - Nervousness [Recovering/Resolving]
  - Dizziness [Recovering/Resolving]
  - Nausea [Recovering/Resolving]
  - Diarrhoea [None]
  - Expired product administered [None]
